FAERS Safety Report 11984806 (Version 1)
Quarter: 2016Q1

REPORT INFORMATION
  Report Type: Spontaneous
  Country: RS (occurrence: RS)
  Receive Date: 20160201
  Receipt Date: 20160201
  Transmission Date: 20160526
  Serious: Yes (Hospitalization, Other)
  Sender: FDA-Public Use
  Company Number: RS-NORTHSTAR HEALTHCARE HOLDINGS-RS-2016NSR000068

PATIENT

DRUGS (1)
  1. PROPRANOLOL HYDROCHLORIDE. [Suspect]
     Active Substance: PROPRANOLOL HYDROCHLORIDE
     Indication: PRODUCT USED FOR UNKNOWN INDICATION
     Dosage: UNK

REACTIONS (16)
  - Bradycardia [Unknown]
  - Haemorrhage [Unknown]
  - Cerebral infarction [Unknown]
  - Repetitive speech [Recovered/Resolved]
  - Vertebral artery occlusion [Unknown]
  - Abnormal behaviour [Recovered/Resolved]
  - Disorientation [Recovered/Resolved]
  - Stenosis [Unknown]
  - Embolism arterial [Unknown]
  - Accidental overdose [Unknown]
  - Hypertension [Unknown]
  - Mitral valve incompetence [Unknown]
  - Toxicity to various agents [Unknown]
  - Confusional state [Recovered/Resolved]
  - Cerebral ischaemia [Unknown]
  - Anterograde amnesia [Recovered/Resolved]
